FAERS Safety Report 4984235-5 (Version None)
Quarter: 2006Q2

REPORT INFORMATION
  Report Type: 
  Country: None (occurrence: None)
  Receive Date: 20060420
  Receipt Date: 20060412
  Transmission Date: 20061013
  Serious: No
  Sender: FDA-Public Use
  Company Number: A044-002-006043

PATIENT
  Age: 75 Year
  Sex: Male

DRUGS (2)
  1. ARICEPT [Suspect]
     Indication: DEMENTIA ALZHEIMER'S TYPE
     Dosage: 5 MG, 1 IN 1 D, ORAL
     Route: 048
     Dates: start: 20060308, end: 20060301
  2. GALANTAMINE (GALANTAMINE) [Concomitant]

REACTIONS (7)
  - AGITATION [None]
  - COGNITIVE DISORDER [None]
  - EUPHORIC MOOD [None]
  - HALLUCINATION [None]
  - NIGHTMARE [None]
  - PSYCHOMOTOR HYPERACTIVITY [None]
  - VOMITING [None]
